FAERS Safety Report 9209577 (Version 1)
Quarter: 2013Q1

REPORT INFORMATION
  Report Type: Spontaneous
  Country: US (occurrence: None)
  Receive Date: 20120820
  Receipt Date: 20120820
  Transmission Date: 20140127
  Serious: Yes (Hospitalization)
  Sender: FDA-Public Use
  Company Number: 1000030086

PATIENT
  Age: 78 Year
  Sex: Male

DRUGS (9)
  1. VIIBRYD [Suspect]
     Indication: DEPRESSION
     Dates: start: 2012, end: 2012
  2. VIIBRYD [Suspect]
     Indication: DEPRESSION
     Route: 048
     Dates: start: 2012, end: 201204
  3. TALWIN NX [Suspect]
     Indication: BACK PAIN
     Dates: end: 201204
  4. VITAMINS NOS (VITAMINS NOS) (VITAMINS NOS) [Concomitant]
  5. FISH OIL (FISH OIL) (FISH OIL) [Concomitant]
  6. OMEPRAZOLE(OMEPRAZOLE)(OMEPRAZOLE) [Concomitant]
  7. LOSARTAN(LOSARTAN)(LOSARTAN) [Concomitant]
  8. LEVOTHYROXINE (LEVOTHYROXINE SODIUM)(LEVOTHYROXINE SODIUM) [Concomitant]
  9. ASPIRIN [Concomitant]

REACTIONS (2)
  - Dizziness [None]
  - Fatigue [None]
